FAERS Safety Report 22283510 (Version 2)
Quarter: 2023Q2

REPORT INFORMATION
  Report Type: Report from Study
  Country: CA (occurrence: CA)
  Receive Date: 20230504
  Receipt Date: 20230504
  Transmission Date: 20230721
  Serious: Yes (Other)
  Sender: FDA-Public Use
  Company Number: CA-HLS-202300986

PATIENT
  Age: 26 Year
  Sex: Female

DRUGS (1)
  1. CLOZARIL [Suspect]
     Active Substance: CLOZAPINE
     Indication: Product used for unknown indication
     Dosage: 200MG
     Route: 048
     Dates: start: 20230414

REACTIONS (3)
  - Influenza like illness [Unknown]
  - Myocarditis [Unknown]
  - Cardiac failure [Unknown]

NARRATIVE: CASE EVENT DATE: 20230427
